FAERS Safety Report 10905571 (Version 2)
Quarter: 2020Q1

REPORT INFORMATION
  Report Type: Spontaneous
  Country: US (occurrence: US)
  Receive Date: 20150311
  Receipt Date: 20200309
  Transmission Date: 20200409
  Serious: No
  Sender: FDA-Public Use
  Company Number: US-PFIZER INC-2014114932

PATIENT
  Age: 53 Year
  Sex: Female

DRUGS (23)
  1. ACETYL L-CARNITINE [Concomitant]
     Active Substance: ACETYLCARNITINE
     Route: 048
  2. PROTONIX [Concomitant]
     Active Substance: PANTOPRAZOLE SODIUM
     Dosage: 40 MG, DAILY
     Route: 048
  3. POLYETHYLENE GLYCOL POWDER [Concomitant]
     Dosage: UNK, AS NEEDED (1 MISCELLANEOUS)
  4. AMBIEN [Concomitant]
     Active Substance: ZOLPIDEM TARTRATE
     Route: 048
  5. VICTOZA [Concomitant]
     Active Substance: LIRAGLUTIDE
     Dosage: 1 ML, SQ DAILY (2-PAK 0.6 MG/0.1 ML (18 MG/3ML))
     Route: 058
  6. LISINOPRIL. [Concomitant]
     Active Substance: LISINOPRIL
     Dosage: 20 MG, 2X/DAY
     Route: 048
  7. BUSPIRONE [Concomitant]
     Active Substance: BUSPIRONE HYDROCHLORIDE
     Dosage: 5 MG, 3X/DAY
     Route: 048
  8. LEVOTHYROXINE. [Concomitant]
     Active Substance: LEVOTHYROXINE
     Dosage: 100 ?G, DAILY
     Route: 048
  9. LYRICA [Suspect]
     Active Substance: PREGABALIN
     Indication: BACK PAIN
  10. COMBIVENT [Concomitant]
     Active Substance: ALBUTEROL SULFATE\IPRATROPIUM BROMIDE
     Dosage: UNK
     Route: 055
  11. CELEXA [Concomitant]
     Active Substance: CITALOPRAM HYDROBROMIDE
     Dosage: 40 MG, DAILY
     Route: 048
  12. ZOCOR [Concomitant]
     Active Substance: SIMVASTATIN
     Dosage: 20 MG, 1X/DAY (QHS)
     Route: 048
  13. HYDROCHLOROTHIAZIDE. [Concomitant]
     Active Substance: HYDROCHLOROTHIAZIDE
     Dosage: 12.5 MG, DAILY
     Route: 048
  14. DOCUSATE SODIUM. [Concomitant]
     Active Substance: DOCUSATE SODIUM
     Dosage: 100 MG, DAILY (1-2 TABLETS)
     Route: 048
  15. TIZANIDINE. [Concomitant]
     Active Substance: TIZANIDINE
     Dosage: 4 MG, 4X/DAY
     Route: 048
  16. CLOBETASOL [Concomitant]
     Active Substance: CLOBETASOL
     Dosage: 0.05 %, AS NEEDED (TOP PRN)
     Route: 061
  17. LYRICA [Suspect]
     Active Substance: PREGABALIN
     Indication: NEUROPATHY PERIPHERAL
     Dosage: 300 MG, 2X/DAY
     Route: 048
     Dates: start: 20150114, end: 20150212
  18. LYRICA [Suspect]
     Active Substance: PREGABALIN
     Indication: ARTHRALGIA
  19. ASPIRIN. [Concomitant]
     Active Substance: ASPIRIN
     Dosage: 81 MG, DAILY
     Route: 048
  20. AVINZA [Concomitant]
     Active Substance: MORPHINE SULFATE
     Dosage: 45 MG, 2X/DAY (Q12H)
     Route: 048
     Dates: start: 20150212
  21. NIACIN ER [Concomitant]
     Active Substance: NIACIN
     Dosage: 400 MG, DAILY
     Route: 048
  22. JANUVIA [Concomitant]
     Active Substance: SITAGLIPTIN PHOSPHATE
     Dosage: 100 MG, DAILY
     Route: 048
  23. PERCOCET [Concomitant]
     Active Substance: ACETAMINOPHEN\OXYCODONE HYDROCHLORIDE
     Dosage: [OXYCODONE HYDROCHLORIDE 10MG]/[PARACETAMOL 325MG), TID AS NEEDED
     Route: 048
     Dates: start: 20150212

REACTIONS (3)
  - Off label use [Unknown]
  - Product use in unapproved indication [Unknown]
  - Anxiety [Unknown]

NARRATIVE: CASE EVENT DATE: 20150114
